FAERS Safety Report 14320275 (Version 2)
Quarter: 2018Q1

REPORT INFORMATION
  Report Type: Report from Study
  Country: ES (occurrence: ES)
  Receive Date: 20171222
  Receipt Date: 20180302
  Transmission Date: 20180509
  Serious: Yes (Life-Threatening)
  Sender: FDA-Public Use
  Company Number: ES-PFIZER INC-2017543518

PATIENT
  Age: 13 Year
  Sex: Male

DRUGS (9)
  1. ACICLOVIR [Concomitant]
     Active Substance: ACYCLOVIR
     Indication: PROPHYLAXIS
     Dosage: 1200 MG 1X/DAY
     Route: 048
     Dates: start: 20170815
  2. METHOTREXATE. [Suspect]
     Active Substance: METHOTREXATE
     Indication: ACUTE LYMPHOCYTIC LEUKAEMIA
     Dosage: 670 MG, 1X/DAY
     Route: 042
     Dates: start: 20170816, end: 20170818
  3. DEXAMETASONA /00016001/ [Concomitant]
     Active Substance: DEXAMETHASONE
     Indication: PROPHYLAXIS
     Dosage: 3 GTT 1X/DAY
     Route: 031
     Dates: start: 20170822, end: 20170824
  4. ERWINAZE [Suspect]
     Active Substance: ASPARAGINASE ERWINIA CHRYSANTHEMI
     Indication: ACUTE LYMPHOCYTIC LEUKAEMIA
     Dosage: 200 IU/KG 9X/DAY
     Route: 030
     Dates: start: 20170821, end: 20170829
  5. MERCAPTOPURINA [Suspect]
     Active Substance: MERCAPTOPURINE
     Indication: ACUTE LYMPHOCYTIC LEUKAEMIA
     Dosage: 200 MG 1X/DAY
     Route: 042
     Dates: start: 20170816, end: 20170822
  6. VINCRISTINE SULFATE. [Suspect]
     Active Substance: VINCRISTINE SULFATE
     Indication: ACUTE LYMPHOCYTIC LEUKAEMIA
     Dosage: 4 MG 6X/DAY
     Route: 042
     Dates: start: 20170816, end: 20170821
  7. DEXAMETASONA [Suspect]
     Active Substance: DEXAMETHASONE
     Indication: ACUTE LYMPHOCYTIC LEUKAEMIA
     Dosage: 40 MG 1X/DAY
     Route: 042
     Dates: start: 20170816, end: 20170822
  8. SEPTRIN [Concomitant]
     Active Substance: SULFAMETHOXAZOLE\TRIMETHOPRIM
     Indication: PROPHYLAXIS
     Dosage: 1 DF 1X/DAY
     Route: 048
     Dates: start: 20170815
  9. CYTARABINE. [Suspect]
     Active Substance: CYTARABINE
     Indication: ACUTE LYMPHOCYTIC LEUKAEMIA
     Dosage: 4000 MG 1X/DAY
     Route: 042
     Dates: start: 20170820, end: 20170821

REACTIONS (4)
  - Anal inflammation [Recovered/Resolved]
  - Stomatitis [Recovered/Resolved]
  - Catheter site infection [Recovered/Resolved]
  - Pancytopenia [Recovered/Resolved]

NARRATIVE: CASE EVENT DATE: 20170824
